FAERS Safety Report 14501983 (Version 1)
Quarter: 2018Q1

REPORT INFORMATION
  Report Type: Spontaneous
  Country: JP (occurrence: JP)
  Receive Date: 20180208
  Receipt Date: 20180208
  Transmission Date: 20180509
  Serious: Yes (Death, Other)
  Sender: FDA-Public Use
  Company Number: JP-ROCHE-2067380

PATIENT
  Age: 43 Year
  Sex: Female
  Weight: 41 kg

DRUGS (2)
  1. CELLCEPT [Suspect]
     Active Substance: MYCOPHENOLATE MOFETIL\MYCOPHENOLATE MOFETIL HYDROCHLORIDE
     Indication: SYSTEMIC LUPUS ERYTHEMATOSUS
     Route: 048
     Dates: start: 20151228, end: 20160110
  2. RINDERON V [Concomitant]
     Active Substance: BETAMETHASONE VALERATE
     Dosage: DOSAGE IS UNCERTAIN.
     Route: 065
     Dates: start: 20151215, end: 20160125

REACTIONS (11)
  - Enterocolitis [Unknown]
  - Performance status decreased [Unknown]
  - Abdominal pain [Unknown]
  - Vascular pseudoaneurysm ruptured [Unknown]
  - Hyponatraemia [Unknown]
  - Binocular eye movement disorder [Unknown]
  - Condition aggravated [Fatal]
  - Vasculitis [Unknown]
  - Secondary adrenocortical insufficiency [Unknown]
  - Hypoglycaemia [Unknown]
  - Somnolence [Unknown]

NARRATIVE: CASE EVENT DATE: 20160109
